FAERS Safety Report 21729099 (Version 9)
Quarter: 2024Q1

REPORT INFORMATION
  Report Type: Spontaneous
  Country: US (occurrence: US)
  Receive Date: 20221214
  Receipt Date: 20240220
  Transmission Date: 20240409
  Serious: Yes (Other)
  Sender: FDA-Public Use
  Company Number: US-PFIZER INC-PV202200121327

PATIENT
  Age: 61 Year
  Sex: Female

DRUGS (13)
  1. IBRANCE [Suspect]
     Active Substance: PALBOCICLIB
     Indication: Breast cancer female
     Dosage: TAKE 1 TABLET BY MOUTH ONCE DAILY FOR 21 DAYS THEN 7 DAYS OFF WITH FOOD
     Route: 048
     Dates: start: 20221129
  2. IBRANCE [Suspect]
     Active Substance: PALBOCICLIB
     Dosage: DAILY FOR 21 DAYS ON AND 7 DAYS OFF WITH FOOD
     Route: 048
     Dates: start: 20230225
  3. IBRANCE [Suspect]
     Active Substance: PALBOCICLIB
     Dosage: TAKE 1 TABLET BY MOUTH DAILY FOR 21 DAYS ON AND 7 DAYS OFF WITH FOOD
     Route: 048
  4. LORATADINE [Concomitant]
     Active Substance: LORATADINE
     Dosage: 10 MG
  5. OMEPRAZOLE [Concomitant]
     Active Substance: OMEPRAZOLE
     Dosage: 20 MG
  6. RANITIDINE [Concomitant]
     Active Substance: RANITIDINE
     Dosage: UNK (75MG/5ML)
  7. RECLAST [Concomitant]
     Active Substance: ZOLEDRONIC ACID
     Dosage: UNK (5/100ML)
  8. TRIAMCINOLONE [Concomitant]
     Active Substance: TRIAMCINOLONE
     Dosage: UNK
  9. VITAMIN D NOS [Concomitant]
     Active Substance: VITAMIN D NOS
     Dosage: 50000 IU
  10. SAXENDA [Concomitant]
     Active Substance: LIRAGLUTIDE
     Dosage: UNK (18MG/3ML)
  11. FULVESTRANT [Concomitant]
     Active Substance: FULVESTRANT
     Dosage: (250/5ML)
  12. PIQRAY [Concomitant]
     Active Substance: ALPELISIB
     Dosage: 300 MG, 1X/DAY
  13. SYMBICORT [Concomitant]
     Active Substance: BUDESONIDE\FORMOTEROL FUMARATE DIHYDRATE
     Dosage: (SYMBICORT AER 160-4.5)

REACTIONS (16)
  - Haemorrhage [Unknown]
  - Leukopenia [Recovering/Resolving]
  - Fatigue [Not Recovered/Not Resolved]
  - Diarrhoea [Not Recovered/Not Resolved]
  - Depression [Not Recovered/Not Resolved]
  - Insomnia [Unknown]
  - Neutrophil count abnormal [Unknown]
  - Cough [Unknown]
  - Headache [Unknown]
  - Contusion [Unknown]
  - COVID-19 [Unknown]
  - Alopecia [Unknown]
  - Dry skin [Unknown]
  - Gastrooesophageal reflux disease [Unknown]
  - Dry mouth [Unknown]
  - Pruritus [Unknown]

NARRATIVE: CASE EVENT DATE: 20230201
